FAERS Safety Report 5865190-2 (Version None)
Quarter: 2008Q3

REPORT INFORMATION
  Report Type: 
  Country: None (occurrence: None)
  Receive Date: 20080829
  Receipt Date: 20080821
  Transmission Date: 20090109
  Serious: Yes (Hospitalization, Other)
  Sender: FDA-Public Use
  Company Number: B0480084A

PATIENT
  Sex: Male
  Weight: 3.5 kg

DRUGS (8)
  1. HYDROCORTISONE [Suspect]
     Indication: ASTHMA
  2. SALBUTAMOL SULPHATE [Suspect]
     Indication: ASTHMA
     Dosage: 5MG SIX TIMES PER DAY
  3. ATROVENT [Suspect]
     Indication: ASTHMA
  4. AMINOPHYLLINE [Suspect]
     Indication: ASTHMA
  5. SALBUTAMOL SULPHATE [Suspect]
  6. MAGNESIUM SULFATE [Suspect]
     Indication: ASTHMA
  7. AMOXICILLIN [Suspect]
     Indication: ASTHMA
  8. CLARITHROMYCIN [Suspect]
     Indication: ASTHMA

REACTIONS (3)
  - DRUG EXPOSURE DURING PREGNANCY [None]
  - FOETAL DISTRESS SYNDROME [None]
  - TACHYCARDIA FOETAL [None]
